FAERS Safety Report 8260844-5 (Version None)
Quarter: 2012Q2

REPORT INFORMATION
  Report Type: 
  Country: None (occurrence: None)
  Receive Date: 20120402
  Receipt Date: 20120319
  Transmission Date: 20120825
  Serious: Yes (Other)
  Sender: FDA-Public Use
  Company Number: WAES 1203USA02171

PATIENT
  Age: 71 Year
  Sex: Male

DRUGS (4)
  1. DECADRON [Suspect]
     Indication: MULTIPLE MYELOMA
     Dosage: UNK/UNK/PO
     Route: 048
  2. VELCADE [Suspect]
     Indication: MULTIPLE MYELOMA
     Dosage: 2.8 MG/UNK/IV
     Route: 042
     Dates: start: 20111108, end: 20111117
  3. COUMADIN [Concomitant]
  4. REVLIMID [Suspect]
     Indication: MULTIPLE MYELOMA
     Dosage: UNK/UNK/PO
     Route: 048

REACTIONS (1)
  - NEUROPATHY PERIPHERAL [None]
